FAERS Safety Report 15889046 (Version 1)
Quarter: 2019Q1

REPORT INFORMATION
  Report Type: Report from Study
  Country: JP (occurrence: JP)
  Receive Date: 20190130
  Receipt Date: 20190130
  Transmission Date: 20190417
  Serious: Yes (Other)
  Sender: FDA-Public Use
  Company Number: PHHY2013JP174665

PATIENT
  Age: 72 Year
  Sex: Female
  Weight: 60 kg

DRUGS (4)
  1. VOTRIENT [Suspect]
     Active Substance: PAZOPANIB HYDROCHLORIDE
     Dosage: 600 MG, QD
     Route: 048
     Dates: start: 20130724, end: 20130730
  2. VOTRIENT [Suspect]
     Active Substance: PAZOPANIB HYDROCHLORIDE
     Indication: ANGIOSARCOMA
     Dosage: 400 MG, QD
     Route: 048
     Dates: start: 20130510, end: 20130622
  3. VOTRIENT [Suspect]
     Active Substance: PAZOPANIB HYDROCHLORIDE
     Dosage: 400 MG, QD
     Route: 048
     Dates: start: 20130705, end: 20130723
  4. RABEPRAZOLE SODIUM. [Concomitant]
     Active Substance: RABEPRAZOLE SODIUM
     Indication: PROPHYLAXIS
     Route: 048

REACTIONS (6)
  - Hypertension [Recovered/Resolved]
  - White blood cell count decreased [Recovered/Resolved]
  - Thyroid function test abnormal [Recovered/Resolved]
  - Malaise [Recovered/Resolved]
  - Nausea [Recovered/Resolved]
  - Platelet count decreased [Unknown]

NARRATIVE: CASE EVENT DATE: 20130607
